FAERS Safety Report 25250295 (Version 2)
Quarter: 2025Q2

REPORT INFORMATION
  Report Type: Report from Study
  Country: CA (occurrence: CA)
  Receive Date: 20250429
  Receipt Date: 20250506
  Transmission Date: 20250716
  Serious: Yes (Hospitalization, Other)
  Sender: ALEXION PHARMACEUTICALS
  Company Number: CA-AstraZeneca-CH-00855202A

PATIENT
  Age: 74 Year
  Weight: 90.703 kg

DRUGS (1)
  1. ACALABRUTINIB [Suspect]
     Active Substance: ACALABRUTINIB
     Indication: Chronic lymphocytic leukaemia

REACTIONS (7)
  - Fall [Recovering/Resolving]
  - Humerus fracture [Recovering/Resolving]
  - Therapy interrupted [Recovering/Resolving]
  - Delirium [Unknown]
  - Anxiety [Unknown]
  - Parkinson^s disease [Unknown]
  - Asthenia [Unknown]
